FAERS Safety Report 10384573 (Version 1)
Quarter: 2014Q3

REPORT INFORMATION
  Report Type: Spontaneous
  Country: US (occurrence: None)
  Receive Date: 20140813
  Receipt Date: 20140813
  Transmission Date: 20150326
  Serious: No
  Sender: FDA-Public Use
  Company Number: None

PATIENT
  Age: 59 Year
  Sex: Female
  Weight: 59.88 kg

DRUGS (7)
  1. ASA [Concomitant]
     Active Substance: ASPIRIN
  2. ULORIC [Concomitant]
     Active Substance: FEBUXOSTAT
  3. TRIAMT/HCTZ [Concomitant]
     Active Substance: HYDROCHLOROTHIAZIDE\TRIAMTERENE
  4. PROBIOTIC GUMMIES [Concomitant]
  5. IBANDRONATE [Suspect]
     Active Substance: IBANDRONATE SODIUM
     Indication: OSTEOPENIA
     Dosage: 1 TABLET  ONE MONTHLY BY MOUTH AT 6AM WHEN I GOT UP + STAYED UP
     Route: 048
     Dates: start: 20140724, end: 20140724
  6. CRESTOR [Concomitant]
     Active Substance: ROSUVASTATIN CALCIUM
  7. CA 600 + D3 [Concomitant]

REACTIONS (5)
  - Nausea [None]
  - Diarrhoea [None]
  - Chills [None]
  - Myalgia [None]
  - Vomiting [None]

NARRATIVE: CASE EVENT DATE: 20140724
